FAERS Safety Report 5043096-9 (Version None)
Quarter: 2006Q3

REPORT INFORMATION
  Report Type: 
  Country: None (occurrence: None)
  Receive Date: 20060705
  Receipt Date: 20060629
  Transmission Date: 20061208
  Serious: Yes (Life-Threatening, Hospitalization)
  Sender: FDA-Public Use
  Company Number: PHNU2006DE02406

PATIENT
  Age: 36 Year
  Sex: Male
  Weight: 90 kg

DRUGS (7)
  1. GLEEVEC [Suspect]
     Indication: ASTROCYTOMA
     Dosage: 600 MG/DAY
     Route: 048
     Dates: start: 20060301, end: 20060501
  2. LITALIR [Suspect]
     Indication: ASTROCYTOMA
     Dosage: 500 MG, BID
     Route: 048
     Dates: end: 20060501
  3. PANTOPRAZOLE [Concomitant]
     Dosage: 1 DF, QD
     Route: 048
  4. LAMOTRIGINE [Concomitant]
     Dosage: 2 DF, BID
     Route: 048
  5. LAMOTRIGINE [Concomitant]
     Dosage: 425 MG/DAY
     Route: 048
  6. KEPPRA [Concomitant]
     Dosage: 2 DF, BID
     Route: 048
  7. KALINOR-BRAUSETABLETTEN [Concomitant]
     Dosage: 1 DF, BID
     Route: 048

REACTIONS (16)
  - AMNESIA [None]
  - BRAIN OEDEMA [None]
  - DISTURBANCE IN ATTENTION [None]
  - DRUG WITHDRAWAL SYNDROME [None]
  - DYSPNOEA EXERTIONAL [None]
  - FALL [None]
  - HEADACHE [None]
  - HEART RATE INCREASED [None]
  - HYPERHIDROSIS [None]
  - LOSS OF CONSCIOUSNESS [None]
  - MUSCLE CONTRACTIONS INVOLUNTARY [None]
  - MUSCLE SPASMS [None]
  - NEGLECT OF PERSONAL APPEARANCE [None]
  - NEOPLASM PROGRESSION [None]
  - SIMPLE PARTIAL SEIZURES [None]
  - VISION BLURRED [None]
